FAERS Safety Report 9499497 (Version 1)
Quarter: 2013Q3

REPORT INFORMATION
  Report Type: Spontaneous
  Country: IT (occurrence: None)
  Receive Date: 20130903
  Receipt Date: 20130903
  Transmission Date: 20140515
  Serious: Yes (Other)
  Sender: FDA-Public Use
  Company Number: SYM-2013-10104

PATIENT
  Age: 46 Year
  Sex: Female

DRUGS (2)
  1. TETRABENAZINE [Suspect]
     Indication: SCHIZOPHRENIA, PARANOID TYPE
  2. PALIPERIDONE [Suspect]
     Indication: SCHIZOPHRENIA, PARANOID TYPE

REACTIONS (1)
  - Paroxysmal perceptual alteration [None]
